FAERS Safety Report 7969863-7 (Version None)
Quarter: 2011Q4

REPORT INFORMATION
  Report Type: 
  Country: None (occurrence: None)
  Receive Date: 20111212
  Receipt Date: 20111201
  Transmission Date: 20120403
  Serious: Yes (Other)
  Sender: FDA-Public Use
  Company Number: US-BAYER-201016623NA

PATIENT
  Age: 21 Year
  Sex: Female
  Weight: 81.818 kg

DRUGS (2)
  1. YAZ [Suspect]
     Indication: CONTRACEPTION
     Dosage: AS USED DOSE: UNK
     Route: 048
     Dates: start: 20070801, end: 20090701
  2. OMEPRAZOLE [Concomitant]
     Indication: GASTROOESOPHAGEAL REFLUX DISEASE
     Dates: start: 20090201

REACTIONS (12)
  - ABDOMINAL PAIN [None]
  - CHOLELITHIASIS [None]
  - BILIARY COLIC [None]
  - CONSTIPATION [None]
  - NAUSEA [None]
  - CHOLECYSTITIS CHRONIC [None]
  - PANCREATOLITHIASIS [None]
  - GALLBLADDER CHOLESTEROLOSIS [None]
  - VOMITING [None]
  - DIARRHOEA [None]
  - DISCOMFORT [None]
  - BILE DUCT STONE [None]
